FAERS Safety Report 11923438 (Version 1)
Quarter: 2016Q1

REPORT INFORMATION
  Report Type: Report from Study
  Country: US (occurrence: US)
  Receive Date: 20160118
  Receipt Date: 20160118
  Transmission Date: 20160526
  Serious: Yes (Other)
  Sender: FDA-Public Use
  Company Number: US-AMGEN-USASL2016003407

PATIENT
  Age: 50 Year
  Sex: Female

DRUGS (2)
  1. ENBREL [Suspect]
     Active Substance: ETANERCEPT
     Indication: ANKYLOSING SPONDYLITIS
     Dosage: 50 MG, QWK
     Route: 065
  2. INDOMETHACIN                       /00003801/ [Concomitant]
     Active Substance: INDOMETHACIN

REACTIONS (5)
  - Endometrial disorder [Unknown]
  - Urinary tract infection [Unknown]
  - Breast conserving surgery [Unknown]
  - Arthralgia [Unknown]
  - Joint swelling [Unknown]
